FAERS Safety Report 20699312 (Version 3)
Quarter: 2022Q2

REPORT INFORMATION
  Report Type: Spontaneous
  Country: JP (occurrence: JP)
  Receive Date: 20220412
  Receipt Date: 20220613
  Transmission Date: 20220721
  Serious: Yes (Other)
  Sender: FDA-Public Use
  Company Number: JP-NOVARTISPH-NVSJ2021JP003460

PATIENT
  Age: 67 Year
  Sex: Male

DRUGS (2)
  1. TAFINLAR [Suspect]
     Active Substance: DABRAFENIB MESYLATE
     Indication: Lung adenocarcinoma stage IV
     Dosage: UNK
     Route: 048
  2. MEKINIST [Suspect]
     Active Substance: TRAMETINIB DIMETHYL SULFOXIDE
     Indication: Lung adenocarcinoma stage IV
     Dosage: UNK
     Route: 048

REACTIONS (11)
  - Lung adenocarcinoma stage IV [Unknown]
  - Malignant neoplasm progression [Unknown]
  - Neutrophil count decreased [Unknown]
  - Pericardial effusion [Unknown]
  - Concomitant disease aggravated [Unknown]
  - Malignant pleural effusion [Unknown]
  - Concomitant disease aggravated [Unknown]
  - Pyrexia [Recovered/Resolved]
  - Hepatic function abnormal [Unknown]
  - Platelet count decreased [Recovered/Resolved]
  - Chills [Unknown]
